FAERS Safety Report 7513761-X (Version None)
Quarter: 2011Q2

REPORT INFORMATION
  Report Type: 
  Country: None (occurrence: None)
  Receive Date: 20110531
  Receipt Date: 20110504
  Transmission Date: 20111010
  Serious: Yes (Other)
  Sender: FDA-Public Use
  Company Number: US-BAYER-2011-023757

PATIENT
  Age: 18 Year
  Sex: Female
  Weight: 56.689 kg

DRUGS (8)
  1. DROSPIRENONE AND ETHINYL ESTRADIOL [Suspect]
     Indication: PRODUCT USED FOR UNKNOWN INDICATION
     Dosage: UNK
     Route: 048
  2. FLUOXETINE [Concomitant]
     Dosage: 10 MG, UNK
  3. PREDNISONE [Concomitant]
     Dosage: 20 MG, UNK
  4. SERTRALINE HYDROCHLORIDE [Concomitant]
     Dosage: 100 MG, UNK
  5. AZITHROMYCIN [Concomitant]
     Dosage: 250 MG, UNK
  6. PROAIR HFA [Concomitant]
  7. ADVAIR DISKUS 100/50 [Concomitant]
  8. PROPOXYPHENE HCL AND ACETAMINOPHEN [Concomitant]

REACTIONS (5)
  - PULMONARY EMBOLISM [None]
  - INJURY [None]
  - DEEP VEIN THROMBOSIS [None]
  - NON-CARDIAC CHEST PAIN [None]
  - MUSCULOSKELETAL PAIN [None]
